FAERS Safety Report 13487919 (Version 1)
Quarter: 2017Q2

REPORT INFORMATION
  Report Type: Spontaneous
  Country: US (occurrence: US)
  Receive Date: 20170426
  Receipt Date: 20170426
  Transmission Date: 20170830
  Serious: No
  Sender: FDA-Public Use
  Company Number: US-ALKERMES INC.-ALK-2016-001345

PATIENT
  Age: 29 Year
  Sex: Male
  Weight: 70.75 kg

DRUGS (1)
  1. VIVITROL [Suspect]
     Active Substance: NALTREXONE
     Indication: DRUG USE DISORDER
     Dosage: 380 MG, QMO
     Route: 030
     Dates: start: 20160421

REACTIONS (9)
  - Apathy [Recovered/Resolved]
  - Drug dose omission [Recovered/Resolved]
  - Drug screen positive [Unknown]
  - Injection site reaction [Unknown]
  - Irritability [Recovered/Resolved]
  - Injection site pain [Unknown]
  - Withdrawal syndrome [Recovered/Resolved]
  - Fatigue [Recovered/Resolved]
  - Insomnia [Recovered/Resolved]

NARRATIVE: CASE EVENT DATE: 2016
